FAERS Safety Report 7484287-7 (Version None)
Quarter: 2011Q2

REPORT INFORMATION
  Report Type: 
  Country: None (occurrence: None)
  Receive Date: 20110513
  Receipt Date: 20110513
  Transmission Date: 20111010
  Serious: Yes (Life-Threatening)
  Sender: FDA-Public Use
  Company Number: None

PATIENT
  Age: 23 Year
  Sex: Male
  Weight: 74.5 kg

DRUGS (1)
  1. HYDROMORPHONE HCL [Suspect]
     Indication: ABDOMINAL PAIN LOWER
     Dosage: 1MG/ML AS INSTRUCTED IV
     Route: 042
     Dates: start: 20110424, end: 20110428

REACTIONS (2)
  - UNRESPONSIVE TO STIMULI [None]
  - RESPIRATION ABNORMAL [None]
